FAERS Safety Report 16192287 (Version 2)
Quarter: 2020Q3

REPORT INFORMATION
  Report Type: Spontaneous
  Country: US (occurrence: US)
  Receive Date: 20190412
  Receipt Date: 20200715
  Transmission Date: 20201102
  Serious: Yes (Other)
  Sender: FDA-Public Use
  Company Number: US-SA-2019SA093501

PATIENT

DRUGS (24)
  1. QUTIPIN [Concomitant]
     Dosage: UNK
     Dates: start: 201302
  2. TRAZODONE HYDROCHLORIDE. [Concomitant]
     Active Substance: TRAZODONE HYDROCHLORIDE
     Dosage: 1 DF, HS
     Route: 048
     Dates: start: 201302
  3. TAXOTERE [Suspect]
     Active Substance: DOCETAXEL
     Indication: BREAST CANCER STAGE I
     Dosage: 124 MG, Q3W
     Route: 042
     Dates: start: 20130603, end: 20130603
  4. PANTOPRAZOLE SODIUM. [Concomitant]
     Active Substance: PANTOPRAZOLE SODIUM
     Dosage: 1 DF, QD
     Route: 048
     Dates: start: 200903
  5. TOPIRAMATE. [Concomitant]
     Active Substance: TOPIRAMATE
     Dosage: TOPIRAMATE 50 MG ORAL TABLET;1 IN AM AND 2 HS;
     Route: 048
     Dates: start: 200903
  6. HALOPERIDOL. [Concomitant]
     Active Substance: HALOPERIDOL
     Route: 048
  7. AUGMENTIN [Concomitant]
     Active Substance: AMOXICILLIN\CLAVULANATE POTASSIUM
     Dosage: AMOXICILLIN?POT CLAVULANATE 875?125 MG ORAL TABLET (AUGMENTIN);TAKE 1 TABLET EVERY 8 HOURS
     Route: 048
  8. VICTOZA [Concomitant]
     Active Substance: LIRAGLUTIDE
     Route: 058
  9. GABAPENTIN. [Concomitant]
     Active Substance: GABAPENTIN
     Dosage: GABAPENTIN 300 MG ORAL CAPSULE;! PO BID AND 4 CAPSULES AT HS
     Route: 048
  10. TAXOTERE [Suspect]
     Active Substance: DOCETAXEL
     Dosage: 124 MG, Q3W
     Route: 042
     Dates: start: 20130809, end: 20130809
  11. PROPAFENONE HCL [Concomitant]
     Active Substance: PROPAFENONE HYDROCHLORIDE
     Dosage: 1 DF, BID
     Route: 048
     Dates: start: 200903
  12. BACTROBAN [Concomitant]
     Active Substance: MUPIROCIN\MUPIROCIN CALCIUM
     Dosage: APPLY A SMALL AMOIR^T 3 TIMES DAILY AS DIRECTED.;
     Route: 065
  13. TOPICORT [Concomitant]
     Active Substance: DESOXIMETASONE
     Dosage: APPLY AND GENTLY MASSAGE INTO AFFECTED
  14. CYMBALTA [Concomitant]
     Active Substance: DULOXETINE HYDROCHLORIDE
     Dosage: TAKE 1 CAPSULE DAILY
     Route: 048
  15. NEOSAR [Concomitant]
     Active Substance: CYCLOPHOSPHAMIDE
     Indication: BREAST CANCER STAGE I
     Dosage: UNK
  16. ROZEREM [Concomitant]
     Active Substance: RAMELTEON
     Dosage: 1 DF, HS
     Route: 048
     Dates: start: 201302
  17. OXYCODONE HYDROCHLORIDE. [Concomitant]
     Active Substance: OXYCODONE HYDROCHLORIDE
     Dosage: 10 MG ORAL TABLET;TAKE 1 TABLET 3 TIMES DAILY PRN SEVERE PAIN
     Route: 048
  18. CYTOXAN [Concomitant]
     Active Substance: CYCLOPHOSPHAMIDE
     Indication: BREAST CANCER STAGE I
  19. ATORVASTATIN [Concomitant]
     Active Substance: ATORVASTATIN
     Dosage: UNK
     Route: 065
     Dates: start: 200903
  20. MORPHINE SULFATE. [Concomitant]
     Active Substance: MORPHINE SULFATE
     Dosage: TAKE 1 TABLET 3 TIMES DAILY
     Route: 048
  21. METFORMIN HCL [Concomitant]
     Active Substance: METFORMIN HYDROCHLORIDE
     Dosage: 1 DF, BID
     Route: 048
     Dates: start: 200903
  22. LOSARTAN POTASSIUM. [Concomitant]
     Active Substance: LOSARTAN POTASSIUM
     Dosage: TAKE 1 TABLET EVERY TWELVE HOURS
     Route: 048
  23. METOPROLOL TARTRATE. [Concomitant]
     Active Substance: METOPROLOL TARTRATE
     Dosage: 1 DF, BID
     Route: 048
  24. ZANAFLEX [Concomitant]
     Active Substance: TIZANIDINE HYDROCHLORIDE
     Dosage: TAKE 1 CAPSULE 4 TIMES DAILY PRN;
     Route: 048

REACTIONS (2)
  - Alopecia [Not Recovered/Not Resolved]
  - Psychological trauma [Unknown]

NARRATIVE: CASE EVENT DATE: 201306
